FAERS Safety Report 18355675 (Version 1)
Quarter: 2020Q4

REPORT INFORMATION
  Report Type: Spontaneous
  Country: CN (occurrence: CN)
  Receive Date: 20201007
  Receipt Date: 20201007
  Transmission Date: 20210114
  Serious: Yes (Hospitalization, Other)
  Sender: FDA-Public Use
  Company Number: CN-PFIZER INC-2020382250

PATIENT
  Age: 61 Year
  Sex: Male

DRUGS (2)
  1. TAZOCIN [Suspect]
     Active Substance: PIPERACILLIN SODIUM\TAZOBACTAM SODIUM
     Indication: PNEUMONIA
     Dosage: 4.5 G, 2X/DAY
     Route: 041
     Dates: start: 20200917, end: 20200917
  2. SODIUM CHLORIDE. [Concomitant]
     Active Substance: SODIUM CHLORIDE
     Indication: CEREBROVASCULAR ACCIDENT
     Dosage: 100 ML, 2X/DAY
     Route: 041
     Dates: start: 20200917, end: 20200917

REACTIONS (13)
  - Dyspnoea [Recovering/Resolving]
  - Tremor [Recovering/Resolving]
  - Chills [Recovering/Resolving]
  - Alanine aminotransferase increased [Recovering/Resolving]
  - Tachycardia [Recovering/Resolving]
  - Blood albumin decreased [Recovering/Resolving]
  - Body temperature increased [Recovering/Resolving]
  - Hepatic function abnormal [Recovering/Resolving]
  - Tachypnoea [Recovering/Resolving]
  - Aspartate aminotransferase increased [Recovering/Resolving]
  - Erythema multiforme [Recovering/Resolving]
  - Stevens-Johnson syndrome [Recovering/Resolving]
  - Flushing [Recovering/Resolving]

NARRATIVE: CASE EVENT DATE: 20200917
